FAERS Safety Report 14879112 (Version 2)
Quarter: 2018Q2

REPORT INFORMATION
  Report Type: Spontaneous
  Country: DE (occurrence: DE)
  Receive Date: 20180511
  Receipt Date: 20180518
  Transmission Date: 20180711
  Serious: Yes (Other)
  Sender: FDA-Public Use
  Company Number: DE-ASTRAZENECA-2018SE40159

PATIENT
  Age: 45 Year
  Sex: Male

DRUGS (1)
  1. MIFLONIDE BREEZHALER [Suspect]
     Active Substance: BUDESONIDE
     Indication: PRODUCT USED FOR UNKNOWN INDICATION
     Dosage: 200 UG/INHAL NON AZ PRODUCT
     Route: 055

REACTIONS (2)
  - Product physical issue [Recovering/Resolving]
  - Foreign body aspiration [Recovering/Resolving]

NARRATIVE: CASE EVENT DATE: 20180315
